FAERS Safety Report 8060806-7 (Version None)
Quarter: 2012Q1

REPORT INFORMATION
  Report Type: 
  Country: None (occurrence: None)
  Receive Date: 20120120
  Receipt Date: 20110128
  Transmission Date: 20120608
  Serious: No
  Sender: FDA-Public Use
  Company Number: US-ALLERGAN-1101274US

PATIENT
  Age: 67 Year
  Sex: Female

DRUGS (1)
  1. RESTASIS [Suspect]
     Indication: BASEDOW'S DISEASE
     Dosage: 1 GTT, BID
     Route: 047
     Dates: start: 20100701, end: 20110128

REACTIONS (2)
  - SINUSITIS [None]
  - THERAPEUTIC RESPONSE UNEXPECTED [None]
